FAERS Safety Report 7997714 (Version 2)
Quarter: 2022Q1

REPORT INFORMATION
  Report Type: Report from Study
  Country: US (occurrence: None)
  Receive Date: 20110620
  Receipt Date: 20220325
  Transmission Date: 20220424
  Serious: Yes (Hospitalization, Other)
  Sender: FDA-Public Use
  Company Number: US-ROCHE-707790

PATIENT
  Age: 61 Year
  Sex: Female

DRUGS (4)
  1. BEVACIZUMAB [Suspect]
     Active Substance: BEVACIZUMAB
     Indication: Fallopian tube cancer
     Dosage: NON SURGICAL PATIENT, CYCLE: 21 DAYS, REPORTED AS DRUG GIVEN OVER 30-90 MINUTES ON DAY 1.
     Route: 042
     Dates: start: 20100126
  2. PACLITAXEL [Suspect]
     Active Substance: PACLITAXEL
     Indication: Fallopian tube cancer
     Dosage: NON SURGICAL PATIENT, CYCLE: 21 DAYS, REPORTED AS DRUG GIVEN OVER 3 HOURS ON DAY 1.
     Route: 042
     Dates: start: 20100126
  3. CARBOPLATIN [Suspect]
     Active Substance: CARBOPLATIN
     Indication: Fallopian tube cancer
     Dosage: NON SURGICAL PATIENT, CYCLE: 21 DAYS, REPORTED AS DRUG GIVEN OVER 3 HOURS ON DAY 1.
     Route: 042
     Dates: start: 20100126
  4. DOCETAXEL [Suspect]
     Active Substance: DOCETAXEL
     Indication: Fallopian tube cancer
     Dosage: OVER 1 HOUR ON DAY 1
     Route: 042
     Dates: start: 20100126

REACTIONS (4)
  - Gastrointestinal disorder [Unknown]
  - Hyperglycaemia [Unknown]
  - Wound complication [Unknown]
  - Wound dehiscence [Unknown]

NARRATIVE: CASE EVENT DATE: 20100421
